FAERS Safety Report 24576677 (Version 1)
Quarter: 2024Q4

REPORT INFORMATION
  Report Type: Spontaneous
  Country: US (occurrence: None)
  Receive Date: 20241103
  Receipt Date: 20241103
  Transmission Date: 20250114
  Serious: Yes (Life-Threatening, Hospitalization)
  Sender: Public
  Company Number: None

PATIENT
  Age: 73 Year
  Sex: Male
  Weight: 82.55 kg

DRUGS (1)
  1. XTANDI [Suspect]
     Active Substance: ENZALUTAMIDE
     Indication: Prostate cancer
     Dosage: 160 MG DAILY ORAL
     Route: 048
     Dates: start: 20240727

REACTIONS (4)
  - Oedema [None]
  - Fatigue [None]
  - Therapy interrupted [None]
  - Hypertensive crisis [None]

NARRATIVE: CASE EVENT DATE: 20241003
